FAERS Safety Report 5407038-6 (Version None)
Quarter: 2007Q3

REPORT INFORMATION
  Report Type: 
  Country: None (occurrence: None)
  Receive Date: 20070807
  Receipt Date: 20070801
  Transmission Date: 20080115
  Serious: Yes (Other)
  Sender: FDA-Public Use
  Company Number: US-AVENTIS-200715522US

PATIENT
  Sex: Female

DRUGS (1)
  1. KETEK [Suspect]
     Indication: SINUSITIS
     Dosage: DOSE: 300 OR 400/2 TABLETS
     Route: 048
     Dates: start: 20051116, end: 20050101

REACTIONS (1)
  - DEAFNESS UNILATERAL [None]
